FAERS Safety Report 16041907 (Version 3)
Quarter: 2019Q1

REPORT INFORMATION
  Report Type: Spontaneous
  Country: US (occurrence: US)
  Receive Date: 20190306
  Receipt Date: 20190314
  Transmission Date: 20190418
  Serious: No
  Sender: FDA-Public Use
  Company Number: US-PFIZER INC-2019094884

PATIENT
  Age: 67 Year
  Sex: Female

DRUGS (1)
  1. LYRICA [Suspect]
     Active Substance: PREGABALIN
     Dosage: 50 MG, 2X/DAY

REACTIONS (6)
  - Insomnia [Unknown]
  - Pain in extremity [Unknown]
  - Sensitivity to weather change [Unknown]
  - Pain [Unknown]
  - Pyrexia [Unknown]
  - Arthralgia [Unknown]
